FAERS Safety Report 5903616-6 (Version None)
Quarter: 2008Q3

REPORT INFORMATION
  Report Type: 
  Country: None (occurrence: None)
  Receive Date: 20080930
  Receipt Date: 20080923
  Transmission Date: 20090109
  Serious: Yes (Other)
  Sender: FDA-Public Use
  Company Number: US-PFIZER INC-2008069125

PATIENT
  Sex: Female

DRUGS (7)
  1. NORVASC [Suspect]
     Indication: HYPERTENSION
     Route: 048
  2. XALATAN [Suspect]
     Dosage: FREQ:DAILY: EVERY DAY
  3. DRUG, UNSPECIFIED [Suspect]
     Route: 047
  4. LEVOBUNOLOL HCL [Suspect]
     Route: 047
  5. FOSINOPRIL SODIUM [Concomitant]
  6. LISINOPRIL [Concomitant]
  7. AMLODIPINE [Concomitant]

REACTIONS (7)
  - EYE BURNS [None]
  - FALL [None]
  - FATIGUE [None]
  - GAIT DISTURBANCE [None]
  - MALAISE [None]
  - MUSCULAR WEAKNESS [None]
  - PAIN IN EXTREMITY [None]
